FAERS Safety Report 5804542-3 (Version None)
Quarter: 2008Q3

REPORT INFORMATION
  Report Type: 
  Country: None (occurrence: None)
  Receive Date: 20080707
  Receipt Date: 20080707
  Transmission Date: 20090109
  Serious: Yes (Other)
  Sender: FDA-Public Use
  Company Number: None

PATIENT
  Age: 10 Year
  Sex: Male
  Weight: 40.8237 kg

DRUGS (7)
  1. NASONEX [Suspect]
     Indication: MULTIPLE ALLERGIES
     Dosage: ONE SPRAY IN EACH NOSTRIL ONCE A DAY NASAL
     Route: 045
     Dates: start: 20080518, end: 20080530
  2. AMOXICILLIN [Concomitant]
  3. DEPAKOTE [Concomitant]
  4. LITHIUM [Concomitant]
  5. METHYLPHENIDATE HCL [Concomitant]
  6. CLONIDINE [Concomitant]
  7. ZYRTEC [Concomitant]

REACTIONS (3)
  - ABNORMAL BEHAVIOUR [None]
  - AGGRESSION [None]
  - MEMORY IMPAIRMENT [None]
